FAERS Safety Report 16983539 (Version 1)
Quarter: 2019Q4

REPORT INFORMATION
  Report Type: Spontaneous
  Country: US (occurrence: US)
  Receive Date: 20190916
  Receipt Date: 20190916
  Transmission Date: 20200122
  Serious: Yes (Hospitalization)
  Sender: FDA-Public Use
  Company Number: None

PATIENT
  Age: 60 Year
  Weight: 70.76 kg

DRUGS (1)
  1. ABIRATERONE  250MG [Suspect]
     Active Substance: ABIRATERONE
     Indication: PROSTATE CANCER
     Dosage: ?          OTHER DOSE:4 TAB AT ONCE;?
     Route: 048
     Dates: start: 20190320

REACTIONS (2)
  - Headache [None]
  - Dizziness [None]

NARRATIVE: CASE EVENT DATE: 20190915
